FAERS Safety Report 9846039 (Version 2)
Quarter: 2014Q1

REPORT INFORMATION
  Report Type: Spontaneous
  Country: US (occurrence: US)
  Receive Date: 20140127
  Receipt Date: 20140213
  Transmission Date: 20141002
  Serious: Yes (Hospitalization)
  Sender: FDA-Public Use
  Company Number: US-GILEAD-2014-0092941

PATIENT
  Sex: Female

DRUGS (3)
  1. LETAIRIS [Suspect]
     Indication: PULMONARY HYPERTENSION
     Dosage: 5 MG, QD
     Route: 048
     Dates: start: 20130108
  2. LETAIRIS [Suspect]
     Indication: HEPATIC CIRRHOSIS
  3. ADCIRCA [Concomitant]

REACTIONS (2)
  - Oedema peripheral [Unknown]
  - Dyspnoea [Unknown]
